FAERS Safety Report 9644845 (Version 4)
Quarter: 2014Q1

REPORT INFORMATION
  Report Type: Spontaneous
  Country: US (occurrence: US)
  Receive Date: 20131025
  Receipt Date: 20140306
  Transmission Date: 20141002
  Serious: No
  Sender: FDA-Public Use
  Company Number: US-PFIZER INC-2013301909

PATIENT
  Age: 62 Year
  Sex: Male
  Weight: 77.1 kg

DRUGS (8)
  1. CAVERJECT [Suspect]
     Indication: ERECTILE DYSFUNCTION
     Dosage: 0.015 ML, AS NEEDED
     Dates: start: 201309
  2. CAVERJECT [Suspect]
     Dosage: 20 UG, AS NEEDED
     Dates: start: 20131016, end: 201310
  3. CAVERJECT [Suspect]
     Dosage: 10 UG, AS NEEDED
     Dates: start: 20131019
  4. CAVERJECT [Suspect]
     Dosage: UNK, AS NEEDED
     Dates: start: 201402
  5. CAVERJECT [Suspect]
  6. ATORVASTATIN [Concomitant]
     Indication: BLOOD CHOLESTEROL ABNORMAL
     Dosage: 40 MG, DAILY
  7. NIASPAN [Concomitant]
     Indication: BLOOD CHOLESTEROL ABNORMAL
     Dosage: 500 MG, 1X/DAY
  8. LIPITOR [Concomitant]
     Dosage: UNK

REACTIONS (3)
  - Drug ineffective [Unknown]
  - Erection increased [Unknown]
  - Product quality issue [Unknown]
